FAERS Safety Report 4849022-7 (Version None)
Quarter: 2005Q4

REPORT INFORMATION
  Report Type: 
  Country: None (occurrence: None)
  Receive Date: 20051122
  Receipt Date: 20051007
  Transmission Date: 20060501
  Serious: Yes (Other)
  Sender: FDA-Public Use
  Company Number: US-JNJFOC-20051002360

PATIENT
  Age: 35 Year
  Sex: Female

DRUGS (1)
  1. RISPERDAL [Suspect]
     Dosage: 25 MG, INTRA-MUSCULAR
     Route: 030
     Dates: start: 20050906

REACTIONS (1)
  - NEUROLEPTIC MALIGNANT SYNDROME [None]
